FAERS Safety Report 9872438 (Version 1)
Quarter: 2014Q1

REPORT INFORMATION
  Report Type: Spontaneous
  Country: US (occurrence: US)
  Receive Date: 20140206
  Receipt Date: 20140206
  Transmission Date: 20141002
  Serious: No
  Sender: FDA-Public Use
  Company Number: US-ACORDA-ACO_100382_2013

PATIENT
  Sex: Female
  Weight: 64.85 kg

DRUGS (4)
  1. AMPYRA [Suspect]
     Indication: GAIT DISTURBANCE
     Dosage: 10 MG, Q 12 HRS
     Route: 048
     Dates: start: 2013, end: 20131108
  2. VESICARE [Concomitant]
     Dosage: UNK
     Route: 065
  3. BACLOFEN [Concomitant]
     Dosage: UNK
     Route: 065
  4. AVONEX [Concomitant]
     Dosage: UNK
     Route: 065

REACTIONS (2)
  - Headache [Not Recovered/Not Resolved]
  - Insomnia [Recovering/Resolving]
